FAERS Safety Report 7722435-1 (Version None)
Quarter: 2011Q3

REPORT INFORMATION
  Report Type: 
  Country: None (occurrence: None)
  Receive Date: 20110831
  Receipt Date: 20110829
  Transmission Date: 20111222
  Serious: Yes (Hospitalization)
  Sender: FDA-Public Use
  Company Number: US-PFIZER INC-2011201782

PATIENT
  Sex: Female
  Weight: 77.098 kg

DRUGS (7)
  1. IBUPROFEN [Suspect]
     Indication: ANTIINFLAMMATORY THERAPY
     Dosage: 800 MG, AS NEEDED
  2. ELAVIL [Suspect]
     Indication: MAJOR DEPRESSION
     Dosage: UNK
     Dates: start: 19950101, end: 19980101
  3. ZOLOFT [Suspect]
     Indication: MAJOR DEPRESSION
     Dosage: 100 MG, DAILY
     Route: 048
     Dates: start: 19950101
  4. PROZAC [Suspect]
     Indication: SUICIDAL IDEATION
  5. PROZAC [Suspect]
     Indication: MAJOR DEPRESSION
     Dosage: UNK
     Dates: start: 19850101
  6. ZOLOFT [Suspect]
     Indication: SUICIDAL IDEATION
     Dosage: 150 MG, DAILY
     Route: 048
     Dates: start: 19980101
  7. ELAVIL [Suspect]
     Indication: SUICIDAL IDEATION

REACTIONS (2)
  - MAJOR DEPRESSION [None]
  - SUICIDAL IDEATION [None]
